FAERS Safety Report 5398715-4 (Version None)
Quarter: 2007Q3

REPORT INFORMATION
  Report Type: 
  Country: None (occurrence: None)
  Receive Date: 20070726
  Receipt Date: 20070404
  Transmission Date: 20080115
  Serious: No
  Sender: FDA-Public Use
  Company Number: US-AMGEN-KDL201996

PATIENT
  Sex: Female
  Weight: 57.2 kg

DRUGS (13)
  1. PROCRIT [Suspect]
     Indication: RENAL FAILURE CHRONIC
     Dates: start: 20061004, end: 20061119
  2. DILTIAZEM HCL [Concomitant]
     Route: 048
  3. PROGRAF [Concomitant]
     Route: 048
  4. ATENOLOL [Concomitant]
     Route: 048
  5. LASIX [Concomitant]
     Route: 048
  6. LISINOPRIL [Concomitant]
     Route: 048
  7. CELLCEPT [Concomitant]
     Route: 048
  8. PREDNISONE TAB [Concomitant]
     Route: 048
  9. ESTROGEN NOS [Concomitant]
     Route: 061
  10. PROGESTERONE [Concomitant]
     Route: 061
  11. CLONIDINE [Concomitant]
     Route: 048
  12. PEPCID [Concomitant]
     Route: 048
  13. PRAVACHOL [Concomitant]
     Route: 048

REACTIONS (2)
  - THERAPEUTIC RESPONSE DECREASED [None]
  - TRANSFERRIN SATURATION INCREASED [None]
